FAERS Safety Report 13437259 (Version 3)
Quarter: 2017Q3

REPORT INFORMATION
  Report Type: Spontaneous
  Country: AU (occurrence: AU)
  Receive Date: 20170413
  Receipt Date: 20170803
  Transmission Date: 20171127
  Serious: Yes (Other)
  Sender: FDA-Public Use
  Company Number: AU-JNJFOC-20170319142

PATIENT
  Sex: Female
  Weight: 111.3 kg

DRUGS (1)
  1. INFLIXIMAB, RECOMBINANT [Suspect]
     Active Substance: INFLIXIMAB
     Indication: CROHN^S DISEASE
     Route: 042
     Dates: start: 201608

REACTIONS (4)
  - Crohn^s disease [Recovering/Resolving]
  - Surgery [Unknown]
  - Therapy non-responder [Unknown]
  - Enteritis [Recovering/Resolving]

NARRATIVE: CASE EVENT DATE: 2016
